FAERS Safety Report 17882421 (Version 2)
Quarter: 2020Q3

REPORT INFORMATION
  Report Type: Spontaneous
  Country: DE (occurrence: DE)
  Receive Date: 20200610
  Receipt Date: 20200813
  Transmission Date: 20201103
  Serious: Yes (Disabling, Other)
  Sender: FDA-Public Use
  Company Number: DE-PFIZER INC-2020224664

PATIENT
  Sex: Female

DRUGS (2)
  1. CYTOTEC [Suspect]
     Active Substance: MISOPROSTOL
     Indication: LABOUR INDUCTION
     Dosage: 50 UG
     Route: 064
     Dates: start: 20151228
  2. CYTOTEC [Suspect]
     Active Substance: MISOPROSTOL
     Dosage: 100 UG
     Route: 064
     Dates: start: 20151229

REACTIONS (4)
  - Speech disorder [Not Recovered/Not Resolved]
  - Dyspraxia [Not Recovered/Not Resolved]
  - Foetal exposure during delivery [Unknown]
  - Foetal heart rate decreased [Recovered/Resolved]

NARRATIVE: CASE EVENT DATE: 20151228
